FAERS Safety Report 9249550 (Version 1)
Quarter: 2013Q2

REPORT INFORMATION
  Report Type: Spontaneous
  Country: FR (occurrence: FR)
  Receive Date: 20130423
  Receipt Date: 20130423
  Transmission Date: 20140414
  Serious: Yes (Hospitalization)
  Sender: FDA-Public Use
  Company Number: FR-UCBSA-083593

PATIENT
  Age: 88 Year
  Sex: Female

DRUGS (11)
  1. KEPPRA [Suspect]
     Indication: EPILEPSY
     Route: 048
     Dates: start: 2011
  2. KEPPRA [Suspect]
     Indication: EPILEPSY
     Dosage: DECREASED DOSE
     Route: 048
  3. COVERSYL [Concomitant]
     Dosage: DOSE: ONE TABLET OF 2.5 MG DAILY
     Dates: end: 2012
  4. COVERSYL [Concomitant]
     Dosage: INCREASED DOSE
     Dates: start: 2012
  5. HEMIGOXINE NATIVELLE [Concomitant]
     Dosage: DOSE: 0.125MG ONE TABLET DAILY
  6. IMOVANE [Concomitant]
     Dosage: DOSE:3.75 MG ONE TABLET DAILY
  7. INEXIUM [Concomitant]
     Dosage: DOSE: 40 MG ONE TABLET DAILY
     Dates: end: 2012
  8. INEXIUM [Concomitant]
     Dosage: REDUCED DOSE
     Dates: start: 2012
  9. LASILIX [Concomitant]
     Dosage: DOSE: 40 MG ONE TABLET DAILY
     Dates: end: 2012
  10. LASILIX [Concomitant]
     Dates: start: 2012
  11. KARDEGIC [Concomitant]
     Dosage: DAILY DOSE: 75 MG DAILY
     Dates: start: 2011

REACTIONS (4)
  - Depression [Recovered/Resolved]
  - Decreased appetite [Recovered/Resolved]
  - Apraxia [Unknown]
  - Cardio-respiratory distress [Unknown]
